FAERS Safety Report 19492883 (Version 1)
Quarter: 2021Q3

REPORT INFORMATION
  Report Type: Spontaneous
  Country: US (occurrence: US)
  Receive Date: 20210705
  Receipt Date: 20210705
  Transmission Date: 20211014
  Serious: Yes (Hospitalization)
  Sender: FDA-Public Use
  Company Number: US-SA-2021SA211767

PATIENT

DRUGS (1)
  1. ADLYXIN [Suspect]
     Active Substance: LIXISENATIDE
     Indication: DIABETES MELLITUS
     Dosage: 20 UG
     Route: 065

REACTIONS (1)
  - Incorrect dose administered [Unknown]
